FAERS Safety Report 22312229 (Version 6)
Quarter: 2023Q2

REPORT INFORMATION
  Report Type: Report from Study
  Country: US (occurrence: None)
  Receive Date: 20230512
  Receipt Date: 20230606
  Transmission Date: 20230721
  Serious: Yes (Hospitalization)
  Sender: FDA-Public Use
  Company Number: US-ROCHE-3342842

PATIENT
  Age: 51 Year
  Sex: Male
  Weight: 140.1 kg

DRUGS (44)
  1. OBINUTUZUMAB [Suspect]
     Active Substance: OBINUTUZUMAB
     Indication: B-cell lymphoma
     Dosage: ON 21/APR/2023 FROM 1:08 PM TO 5:03 PM, HE RECEIVED MOST RECENT DOSE OF OBINUTUZUMAB PRIOR TO AE/SAE
     Route: 042
     Dates: start: 20230421
  2. GLOFITAMAB [Suspect]
     Active Substance: GLOFITAMAB
     Indication: B-cell lymphoma
     Dosage: ON 25/APR/2023 FROM 1:00 PM TO 5:00 PM, HE RECEIVED MOST RECENT DOSE OF STUDY DRUG PRIOR TO AE/SAE 2
     Route: 042
     Dates: start: 20230425
  3. FLUDEOXYGLUCOSE F-18 [Suspect]
     Active Substance: FLUDEOXYGLUCOSE F-18
     Indication: B-cell lymphoma
     Dosage: ON 17/APR/2023 4:17 PM, HE RECEIVED MOST RECENT DOSE OF FLUDEOXYGLUCOSE PRIOR TO AE/SAE 45 ML.
     Route: 042
     Dates: start: 20230417
  4. LISINOPRIL [Concomitant]
     Active Substance: LISINOPRIL
     Indication: Hypertension
     Route: 048
     Dates: start: 2022
  5. PANTOPRAZOLE [Concomitant]
     Active Substance: PANTOPRAZOLE
     Indication: Dyspepsia
     Route: 048
     Dates: start: 20230309
  6. XANAX [Concomitant]
     Active Substance: ALPRAZOLAM
     Indication: Anxiety
     Route: 048
     Dates: start: 202210
  7. BACTRIM [Concomitant]
     Active Substance: SULFAMETHOXAZOLE\TRIMETHOPRIM
     Route: 048
     Dates: start: 20230126
  8. ACETAMINOPHEN [Concomitant]
     Active Substance: ACETAMINOPHEN
     Route: 048
     Dates: start: 20230425, end: 20230425
  9. ACETAMINOPHEN [Concomitant]
     Active Substance: ACETAMINOPHEN
     Route: 048
     Dates: start: 20230421, end: 20230421
  10. DEXAMETHASONE [Concomitant]
     Active Substance: DEXAMETHASONE
     Route: 042
     Dates: start: 20230425, end: 20230425
  11. DEXAMETHASONE [Concomitant]
     Active Substance: DEXAMETHASONE
     Route: 048
     Dates: start: 20230403
  12. DIPHENHYDRAMINE [Concomitant]
     Active Substance: DIPHENHYDRAMINE
     Route: 042
     Dates: start: 20230425, end: 20230425
  13. DIPHENHYDRAMINE [Concomitant]
     Active Substance: DIPHENHYDRAMINE
     Route: 042
     Dates: start: 20230421, end: 20230421
  14. METHYLPREDNISOLONE [Concomitant]
     Active Substance: METHYLPREDNISOLONE
     Route: 042
     Dates: start: 20230425, end: 20230425
  15. METHYLPREDNISOLONE [Concomitant]
     Active Substance: METHYLPREDNISOLONE
     Route: 042
     Dates: start: 20230421, end: 20230421
  16. FAMOTIDINE [Concomitant]
     Active Substance: FAMOTIDINE
     Route: 042
     Dates: start: 20230425, end: 20230425
  17. ALBUTEROL [Concomitant]
     Active Substance: ALBUTEROL
     Dosage: 3 PUFF, INHALATION AEROSOL
     Route: 055
     Dates: start: 20230425, end: 20230425
  18. ALBUTEROL [Concomitant]
     Active Substance: ALBUTEROL
     Dosage: NEBULIZER
     Route: 055
     Dates: start: 20230425, end: 20230425
  19. GABAPENTIN [Concomitant]
     Active Substance: GABAPENTIN
     Indication: Neuropathy peripheral
     Route: 048
     Dates: start: 20230503, end: 20230503
  20. GABAPENTIN [Concomitant]
     Active Substance: GABAPENTIN
     Indication: Pain
     Dosage: NEBULIZER
     Route: 055
     Dates: start: 20230425, end: 20230425
  21. GABAPENTIN [Concomitant]
     Active Substance: GABAPENTIN
     Route: 048
     Dates: start: 20230120
  22. FLUCONAZOLE [Concomitant]
     Active Substance: FLUCONAZOLE
     Indication: Abdominal wall haematoma
     Route: 048
     Dates: start: 20230503, end: 20230503
  23. FLUCONAZOLE [Concomitant]
     Active Substance: FLUCONAZOLE
     Dosage: NEBULIZER
     Route: 055
     Dates: start: 20230425, end: 20230425
  24. ALLOPURINOL [Concomitant]
     Active Substance: ALLOPURINOL
     Indication: Abdominal wall haematoma
     Route: 048
     Dates: start: 20230503, end: 20230503
  25. ALLOPURINOL [Concomitant]
     Active Substance: ALLOPURINOL
     Dosage: NEBULIZER
     Route: 055
     Dates: start: 20230425, end: 20230425
  26. HYDROCHLOROTHIAZIDE [Concomitant]
     Active Substance: HYDROCHLOROTHIAZIDE
     Indication: Abdominal wall haematoma
     Route: 048
     Dates: start: 20230503, end: 20230503
  27. HYDROCHLOROTHIAZIDE [Concomitant]
     Active Substance: HYDROCHLOROTHIAZIDE
     Indication: Prophylaxis
     Dosage: NEBULIZER
     Route: 055
     Dates: start: 20230425, end: 20230425
  28. HYDROCHLOROTHIAZIDE [Concomitant]
     Active Substance: HYDROCHLOROTHIAZIDE
     Route: 048
     Dates: start: 20230424
  29. VALACYCLOVIR [Concomitant]
     Active Substance: VALACYCLOVIR HYDROCHLORIDE
     Indication: Abdominal wall haematoma
     Route: 048
     Dates: start: 20230503, end: 20230503
  30. VALACYCLOVIR [Concomitant]
     Active Substance: VALACYCLOVIR HYDROCHLORIDE
     Dosage: NEBULIZER
     Route: 055
     Dates: start: 20230425, end: 20230425
  31. DOCUSATE SODIUM [Concomitant]
     Active Substance: DOCUSATE SODIUM
     Indication: Abdominal wall haematoma
     Route: 048
     Dates: start: 20230503, end: 20230503
  32. DOCUSATE SODIUM [Concomitant]
     Active Substance: DOCUSATE SODIUM
     Dosage: NEBULIZER
     Route: 055
     Dates: start: 20230425, end: 20230425
  33. DOCUSATE SODIUM [Concomitant]
     Active Substance: DOCUSATE SODIUM
     Route: 048
     Dates: start: 20230404
  34. SULFAMETHOXAZOLE [Concomitant]
     Active Substance: SULFAMETHOXAZOLE
     Indication: Abdominal wall haematoma
     Route: 048
     Dates: start: 20230503, end: 20230503
  35. SULFAMETHOXAZOLE [Concomitant]
     Active Substance: SULFAMETHOXAZOLE
     Dosage: NEBULIZER
     Route: 055
     Dates: start: 20230425, end: 20230425
  36. SULFAMETHOXAZOLE [Concomitant]
     Active Substance: SULFAMETHOXAZOLE
     Route: 061
     Dates: start: 20230424
  37. PANTOPRAZOLE [Concomitant]
     Active Substance: PANTOPRAZOLE
     Indication: Abdominal wall haematoma
     Route: 048
     Dates: start: 20230503, end: 20230503
  38. PANTOPRAZOLE [Concomitant]
     Active Substance: PANTOPRAZOLE
     Dosage: NEBULIZER
     Route: 055
     Dates: start: 20230425, end: 20230425
  39. DOCUSATE SODIUM [Concomitant]
     Active Substance: DOCUSATE SODIUM
     Route: 048
     Dates: start: 20230404
  40. ACYCLOVIR [Concomitant]
     Active Substance: ACYCLOVIR
     Indication: Viral infection
     Route: 048
     Dates: start: 20230126, end: 20230525
  41. CLOTRIMAZOLE [Concomitant]
     Active Substance: CLOTRIMAZOLE
     Indication: Candida infection
     Route: 048
     Dates: start: 20220926, end: 20230425
  42. SODIUM CHLORIDE [Concomitant]
     Active Substance: SODIUM CHLORIDE
     Route: 042
     Dates: start: 20230424
  43. SODIUM CHLORIDE [Concomitant]
     Active Substance: SODIUM CHLORIDE
     Route: 042
     Dates: start: 20230425
  44. CHOLECALCIFEROL [Concomitant]
     Active Substance: CHOLECALCIFEROL
     Indication: Vitamin supplementation
     Dosage: 2000 OTHER
     Route: 048
     Dates: start: 20220926

REACTIONS (1)
  - COVID-19 pneumonia [Recovered/Resolved]

NARRATIVE: CASE EVENT DATE: 20230501
